FAERS Safety Report 9263705 (Version 1)
Quarter: 2013Q2

REPORT INFORMATION
  Report Type: Report from Study
  Country: US (occurrence: US)
  Receive Date: 20130430
  Receipt Date: 20130430
  Transmission Date: 20140414
  Serious: Yes (Other)
  Sender: FDA-Public Use
  Company Number: PHEH2013US006902

PATIENT
  Age: 46 Year
  Sex: Female
  Weight: 86 kg

DRUGS (4)
  1. GILENYA [Suspect]
     Indication: MULTIPLE SCLEROSIS
     Dosage: 0.5 MG, QD
     Route: 048
  2. BACLOFEN [Concomitant]
     Indication: MULTIPLE SCLEROSIS
     Dosage: 10 MG, QID
     Route: 048
  3. AMPYRA [Concomitant]
     Indication: GAIT DISTURBANCE
     Dosage: 10 MG, BID
     Route: 048
  4. VALIUM [Concomitant]
     Indication: ANXIETY
     Dosage: 2 MG, QD
     Route: 048

REACTIONS (4)
  - Oesophageal dilatation [Unknown]
  - Hiatus hernia [Unknown]
  - Gastritis [Unknown]
  - Erosive duodenitis [Unknown]
